FAERS Safety Report 8502552 (Version 2)
Quarter: 2012Q4

REPORT INFORMATION
  Report Type: 
  Country: FI (occurrence: NO)
  Receive Date: 20120410
  Receipt Date: 20121010
  Transmission Date: 20130627
  Serious: Yes (Other)
  Sender: FDA-Public Use
  Company Number: PHHY2012NO028133

PATIENT
  Age: 14 Year
  Sex: Male

DRUGS (8)
  1. ETOPOSIDE [Suspect]
     Indication: MEDULLOBLASTOMA
  2. CARBOPLATIN [Suspect]
     Indication: MEDULLOBLASTOMA
  3. VINCRISTINE [Suspect]
     Indication: MEDULLOBLASTOMA
  4. CYCLOPHOSPHAMIDE [Suspect]
     Indication: MEDULLOBLASTOMA
  5. TEMOZOLOMIDE [Suspect]
     Indication: MEDULLOBLASTOMA
  6. CISPLATIN [Suspect]
     Indication: MEDULLOBLASTOMA
  7. LOMUSTINE [Suspect]
     Indication: MEDULLOBLASTOMA
  8. RADIATION THERAPY [Suspect]
     Indication: MEDULLOBLASTOMA
     Dosage: 35 Gy to the craniospinal axis and 20 Gy tumor boosts to the posterior fossa and the cerebral tumor

REACTIONS (7)
  - Neurotoxicity [Unknown]
  - Hypothyroidism [Recovering/Resolving]
  - Ataxia [Recovering/Resolving]
  - Dysarthria [Recovering/Resolving]
  - Visual impairment [Recovering/Resolving]
  - Cognitive disorder [Recovering/Resolving]
  - Coordination abnormal [Recovering/Resolving]
